FAERS Safety Report 10159755 (Version 1)
Quarter: 2014Q2

REPORT INFORMATION
  Report Type: Spontaneous
  Country: US (occurrence: US)
  Receive Date: 20140508
  Receipt Date: 20140508
  Transmission Date: 20141212
  Serious: No
  Sender: FDA-Public Use
  Company Number: US-GLAXOSMITHKLINE-A1025225A

PATIENT
  Age: 52 Year
  Sex: Female
  Weight: 90 kg

DRUGS (3)
  1. TYKERB [Suspect]
     Indication: BREAST CANCER
     Dosage: 5TAB PER DAY
     Route: 048
     Dates: start: 20130215
  2. HERCEPTIN [Concomitant]
  3. OXYCODONE [Concomitant]

REACTIONS (5)
  - Diarrhoea [Recovering/Resolving]
  - Myalgia [Unknown]
  - Fatigue [Unknown]
  - Malaise [Unknown]
  - Activities of daily living impaired [Unknown]
